FAERS Safety Report 10351277 (Version 1)
Quarter: 2014Q3

REPORT INFORMATION
  Report Type: Spontaneous
  Country: US (occurrence: US)
  Receive Date: 20140730
  Receipt Date: 20140730
  Transmission Date: 20150326
  Serious: Yes (Hospitalization)
  Sender: FDA-Public Use
  Company Number: US-GLAXOSMITHKLINE-A1082534A

PATIENT
  Age: 59 Year
  Sex: Male

DRUGS (22)
  1. ADVAIR HFA [Suspect]
     Active Substance: FLUTICASONE PROPIONATE\SALMETEROL XINAFOATE
     Indication: DYSPNOEA
     Dosage: 1PUFF TWICE PER DAY
     Route: 055
     Dates: start: 2013
  2. DOXEPIN [Concomitant]
     Active Substance: DOXEPIN
  3. MELOXICAM. [Concomitant]
     Active Substance: MELOXICAM
  4. SIMVASTATIN. [Concomitant]
     Active Substance: SIMVASTATIN
  5. PIOGLITAZONE [Concomitant]
     Active Substance: PIOGLITAZONE
  6. METOPROLOL [Concomitant]
     Active Substance: METOPROLOL
  7. BETAMETHASONE + CLOTRIMAZOLE [Concomitant]
  8. VENTOLIN [Concomitant]
     Active Substance: ALBUTEROL SULFATE
  9. GABAPENTIN. [Concomitant]
     Active Substance: GABAPENTIN
  10. AMLODIPINE [Concomitant]
     Active Substance: AMLODIPINE BESYLATE
  11. HYDROCHLOROTHIAZIDE. [Concomitant]
     Active Substance: HYDROCHLOROTHIAZIDE
  12. TAMSULOSIN [Concomitant]
     Active Substance: TAMSULOSIN
  13. LANOXIN [Concomitant]
     Active Substance: DIGOXIN
  14. HYDRALAZINE [Concomitant]
     Active Substance: HYDRALAZINE HYDROCHLORIDE
  15. ALEVE [Concomitant]
     Active Substance: NAPROXEN SODIUM
  16. METFORMIN [Concomitant]
     Active Substance: METFORMIN HYDROCHLORIDE
  17. TRAMADOL [Concomitant]
     Active Substance: TRAMADOL
  18. VITAMIN D3 [Concomitant]
     Active Substance: CHOLECALCIFEROL
  19. CLOTRIMAZOLE. [Concomitant]
     Active Substance: CLOTRIMAZOLE
  20. GLIMEPIRIDE. [Concomitant]
     Active Substance: GLIMEPIRIDE
  21. ENALAPRIL [Concomitant]
     Active Substance: ENALAPRIL
  22. CYCLOBENZAPRINE [Concomitant]
     Active Substance: CYCLOBENZAPRINE

REACTIONS (8)
  - Pneumonia [Unknown]
  - Prostatic disorder [Not Recovered/Not Resolved]
  - Rash [Unknown]
  - Lung disorder [Unknown]
  - Device misuse [Unknown]
  - Micturition urgency [Not Recovered/Not Resolved]
  - Drug administration error [Unknown]
  - Gallbladder disorder [Not Recovered/Not Resolved]
